FAERS Safety Report 11636949 (Version 1)
Quarter: 2015Q4

REPORT INFORMATION
  Report Type: Report from Study
  Country: US (occurrence: US)
  Receive Date: 20151016
  Receipt Date: 20151016
  Transmission Date: 20160304
  Serious: Yes (Other)
  Sender: FDA-Public Use
  Company Number: US-PFIZER INC-2015335663

PATIENT

DRUGS (8)
  1. IFOSFAMIDE. [Suspect]
     Active Substance: IFOSFAMIDE
     Indication: RHABDOMYOSARCOMA
     Dosage: WEEKS 7-9 AND 26-34 -
  2. ACTINOMYCIN D [Suspect]
     Active Substance: DACTINOMYCIN
     Indication: RHABDOMYOSARCOMA
     Dosage: WEEKS 38-46
  3. ETOPOSIDE. [Suspect]
     Active Substance: ETOPOSIDE
     Indication: RHABDOMYOSARCOMA
     Dosage: WEEKS 7-9 AND 26-34 -
  4. VINCRISTINE [Suspect]
     Active Substance: VINCRISTINE
     Indication: RHABDOMYOSARCOMA
     Dosage: WEEKS 1-6, 20-25, 47-51 - WEEKS 7-9 AND 26-34 - WEEKS 38-46
  5. CIXUTUMUMAB [Suspect]
     Active Substance: CIXUTUMUMAB
     Indication: RHABDOMYOSARCOMA
     Dosage: 9 MG/KG, WEEKLY
     Route: 042
  6. IRINOTECAN HCL [Suspect]
     Active Substance: IRINOTECAN HYDROCHLORIDE
     Indication: RHABDOMYOSARCOMA
     Dosage: WEEKS 1-6, 20-25, 47-51 -
  7. DOXORUBICIN HCL [Suspect]
     Active Substance: DOXORUBICIN HYDROCHLORIDE
     Indication: RHABDOMYOSARCOMA
     Dosage: WEEKS 7-9 AND 26-34 -
  8. CYCLOPHOSPHAMIDE. [Suspect]
     Active Substance: CYCLOPHOSPHAMIDE
     Indication: RHABDOMYOSARCOMA
     Dosage: WEEKS 7-9 AND 26-34 - WEEKS 38-46

REACTIONS (1)
  - Venoocclusive liver disease [Unknown]
